FAERS Safety Report 9538659 (Version 15)
Quarter: 2016Q1

REPORT INFORMATION
  Report Type: Report from Study
  Country: CA (occurrence: CA)
  Receive Date: 20130920
  Receipt Date: 20160226
  Transmission Date: 20160526
  Serious: Yes (Other)
  Sender: FDA-Public Use
  Company Number: PHHY2013CA104276

PATIENT
  Sex: Female

DRUGS (4)
  1. TASIGNA [Suspect]
     Active Substance: NILOTINIB
     Indication: CHRONIC MYELOID LEUKAEMIA
     Dosage: 300 MG, BID
     Route: 048
     Dates: start: 20130419
  2. TASIGNA [Suspect]
     Active Substance: NILOTINIB
     Dosage: 300 MG, BID
     Route: 048
  3. TASIGNA [Suspect]
     Active Substance: NILOTINIB
     Dosage: 150 MG, BID
     Route: 048
  4. TASIGNA [Suspect]
     Active Substance: NILOTINIB
     Dosage: 450 MG, DAILY (300 MG QAM AND 150 MG QPM)
     Route: 048
     Dates: start: 201308

REACTIONS (57)
  - Lymphadenopathy [Recovered/Resolved]
  - Flushing [Unknown]
  - Acne [Unknown]
  - Pruritus [Recovering/Resolving]
  - Hypertension [Unknown]
  - Migraine [Unknown]
  - Peripheral swelling [Recovering/Resolving]
  - Eye swelling [Unknown]
  - Asthenia [Unknown]
  - Palpitations [Unknown]
  - Menstruation irregular [Unknown]
  - Nodule [Unknown]
  - Parosmia [Unknown]
  - Photophobia [Unknown]
  - Feeling hot [Unknown]
  - Dry eye [Unknown]
  - Arthralgia [Unknown]
  - Liver disorder [Unknown]
  - Dandruff [Recovering/Resolving]
  - Pigmentation disorder [Unknown]
  - Visual impairment [Unknown]
  - Rhinorrhoea [Unknown]
  - Aptyalism [Unknown]
  - Food craving [Unknown]
  - Skin atrophy [Unknown]
  - Dry mouth [Unknown]
  - Pain in extremity [Unknown]
  - Blood glucose increased [Recovering/Resolving]
  - Micturition urgency [Unknown]
  - Dry throat [Unknown]
  - Lymph node pain [Recovered/Resolved]
  - Paraesthesia [Unknown]
  - Erythema [Unknown]
  - Skin discolouration [Unknown]
  - Fatigue [Unknown]
  - Somnolence [Unknown]
  - Chromaturia [Recovered/Resolved]
  - Dyspepsia [Unknown]
  - Blood cholesterol increased [Not Recovered/Not Resolved]
  - Abdominal distension [Unknown]
  - Headache [Unknown]
  - Vision blurred [Unknown]
  - Urinary tract infection [Recovered/Resolved]
  - Dehydration [Unknown]
  - Crepitations [Unknown]
  - Hypoaesthesia [Unknown]
  - Vaginal infection [Unknown]
  - Eye irritation [Unknown]
  - Visual acuity reduced [Unknown]
  - Pollakiuria [Unknown]
  - Sensation of foreign body [Unknown]
  - Scab [Unknown]
  - Breath odour [Not Recovered/Not Resolved]
  - Angular cheilitis [Unknown]
  - Myalgia [Unknown]
  - Alopecia [Unknown]
  - Dry skin [Not Recovered/Not Resolved]
